FAERS Safety Report 8476476-X (Version None)
Quarter: 2012Q2

REPORT INFORMATION
  Report Type: 
  Country: None (occurrence: None)
  Receive Date: 20120615
  Receipt Date: 20120607
  Transmission Date: 20120825
  Serious: Yes (Hospitalization)
  Sender: FDA-Public Use
  Company Number: WAES 1203USA03620

PATIENT
  Age: 15 Year
  Sex: Female

DRUGS (16)
  1. LANSOPRAZOLE [Concomitant]
  2. PHOTINIA PYRIFOLIA [Concomitant]
  3. SELENIUM (UNSPECIFIED) [Concomitant]
  4. DECADRON [Suspect]
     Indication: INTRACRANIAL PRESSURE INCREASED
     Dosage: 4 MG/BID/ PO
     Route: 048
     Dates: start: 20120326, end: 20120327
  5. BLACK CURRANT (+) TEA [Concomitant]
  6. LYCOPENE [Concomitant]
  7. RIDAFOROLIMUS [Suspect]
     Indication: NEOPLASM
     Dosage: 30 MG/DAILY/PO
     Route: 048
     Dates: start: 20120221, end: 20120224
  8. FENTANYL CITRATE [Concomitant]
  9. MANUKA HONEY [Concomitant]
  10. RADIANCE [Concomitant]
  11. TEA BROCCOLI (+) CARROT [Concomitant]
  12. CYCLIZINE [Concomitant]
  13. TURMERIC [Concomitant]
  14. MAXIDEX [Concomitant]
  15. MORPHINE SULFATE [Concomitant]
  16. BACLOFEN [Concomitant]

REACTIONS (12)
  - ALANINE AMINOTRANSFERASE INCREASED [None]
  - PARAESTHESIA [None]
  - BLOOD SELENIUM INCREASED [None]
  - VIRAL INFECTION [None]
  - ASPARTATE AMINOTRANSFERASE INCREASED [None]
  - PARTIAL SEIZURES [None]
  - FATIGUE [None]
  - ORAL HERPES [None]
  - BACTERIAL INFECTION [None]
  - HEADACHE [None]
  - INTRACRANIAL PRESSURE INCREASED [None]
  - INFECTION [None]
